FAERS Safety Report 16040298 (Version 1)
Quarter: 2019Q1

REPORT INFORMATION
  Report Type: Spontaneous
  Country: JP (occurrence: JP)
  Receive Date: 20190306
  Receipt Date: 20190306
  Transmission Date: 20190418
  Serious: Yes (Other)
  Sender: FDA-Public Use
  Company Number: JP-PFIZER INC-2019091054

PATIENT
  Age: 79 Year
  Sex: Female

DRUGS (2)
  1. MOHRUS [Concomitant]
     Active Substance: KETOPROFEN
     Indication: PAIN
  2. LYRICA [Suspect]
     Active Substance: PREGABALIN
     Indication: POST HERPETIC NEURALGIA
     Dosage: 2 DF, UNK
     Route: 048

REACTIONS (6)
  - Musculoskeletal pain [Unknown]
  - Dyspnoea [Unknown]
  - Myalgia [Unknown]
  - Oedema peripheral [Unknown]
  - Cardiac disorder [Unknown]
  - Arrhythmia [Unknown]
